FAERS Safety Report 9451019 (Version 1)
Quarter: 2013Q3

REPORT INFORMATION
  Report Type: Report from Study
  Country: DE (occurrence: DE)
  Receive Date: 20130809
  Receipt Date: 20130809
  Transmission Date: 20140515
  Serious: Yes (Hospitalization)
  Sender: FDA-Public Use
  Company Number: DE-ASTRAZENECA-2013SE61308

PATIENT
  Age: 8 Month
  Sex: Male

DRUGS (8)
  1. SYNAGIS [Suspect]
     Indication: BRONCHOPULMONARY DYSPLASIA
     Route: 030
     Dates: start: 20120904, end: 20120904
  2. SYNAGIS [Suspect]
     Indication: BRONCHOPULMONARY DYSPLASIA
     Route: 030
     Dates: start: 20121002, end: 20121002
  3. SYNAGIS [Suspect]
     Indication: BRONCHOPULMONARY DYSPLASIA
     Route: 030
     Dates: start: 20121024, end: 20121024
  4. SYNAGIS [Suspect]
     Indication: BRONCHOPULMONARY DYSPLASIA
     Route: 030
     Dates: start: 20121126, end: 20121126
  5. SYNAGIS [Suspect]
     Indication: BRONCHOPULMONARY DYSPLASIA
     Route: 030
     Dates: start: 20121227, end: 20121227
  6. SYNAGIS [Suspect]
     Indication: BRONCHOPULMONARY DYSPLASIA
     Route: 030
     Dates: start: 20130126, end: 20130126
  7. SYNAGIS [Suspect]
     Indication: BRONCHOPULMONARY DYSPLASIA
     Route: 030
     Dates: start: 20130222, end: 20130222
  8. SYNAGIS [Suspect]
     Indication: BRONCHOPULMONARY DYSPLASIA
     Route: 030
     Dates: start: 20130322

REACTIONS (2)
  - Bronchitis [Recovered/Resolved]
  - Respiratory syncytial virus bronchitis [Recovered/Resolved]
